FAERS Safety Report 10652351 (Version 2)
Quarter: 2015Q2

REPORT INFORMATION
  Report Type: Spontaneous
  Country: US (occurrence: US)
  Receive Date: 20141215
  Receipt Date: 20150625
  Transmission Date: 20150821
  Serious: Yes (Death, Hospitalization, Other)
  Sender: FDA-Public Use
  Company Number: US-009507513-1412USA007214

PATIENT
  Sex: Female
  Weight: 68.27 kg

DRUGS (1)
  1. JANUMET [Suspect]
     Active Substance: METFORMIN HYDROCHLORIDE\SITAGLIPTIN PHOSPHATE
     Indication: TYPE 2 DIABETES MELLITUS
     Dosage: 500/50 MG BID
     Route: 048
     Dates: start: 20091028, end: 20121108

REACTIONS (19)
  - Implantable defibrillator insertion [Unknown]
  - Microalbuminuria [Unknown]
  - Diabetic retinopathy [Unknown]
  - Pancreatic carcinoma metastatic [Fatal]
  - Constipation [Unknown]
  - Glaucoma [Unknown]
  - Iron binding capacity total decreased [Unknown]
  - Oedema peripheral [Unknown]
  - Condition aggravated [Unknown]
  - Metastases to liver [Unknown]
  - Peptic ulcer [Unknown]
  - Lobar pneumonia [Unknown]
  - Pleural effusion [Unknown]
  - Haemoglobin decreased [Unknown]
  - Diabetes mellitus [Unknown]
  - Leukocytosis [Unknown]
  - Hospitalisation [Unknown]
  - Neuropathy peripheral [Unknown]
  - Depression [Unknown]

NARRATIVE: CASE EVENT DATE: 20100329
